FAERS Safety Report 10711947 (Version 1)
Quarter: 2015Q1

REPORT INFORMATION
  Report Type: Spontaneous
  Country: US (occurrence: US)
  Receive Date: 20150114
  Receipt Date: 20150114
  Transmission Date: 20150721
  Serious: No
  Sender: FDA-Public Use
  Company Number: US-GLAXOSMITHKLINE-US2014GSK046715

PATIENT
  Age: 88 Year
  Sex: Male

DRUGS (10)
  1. MULTIVITAMIN [Concomitant]
     Active Substance: VITAMINS
  2. COUMADIN [Concomitant]
     Active Substance: WARFARIN SODIUM
  3. TAMSULOSIN [Concomitant]
     Active Substance: TAMSULOSIN
  4. ANORO ELLIPTA [Suspect]
     Active Substance: UMECLIDINIUM BROMIDE\VILANTEROL TRIFENATATE
     Indication: EMPHYSEMA
     Dosage: 1 PUFF(S), QD
     Route: 055
     Dates: start: 20140929
  5. DILTIAZEM [Concomitant]
     Active Substance: DILTIAZEM
  6. GLUCOSAMINE [Concomitant]
     Active Substance: GLUCOSAMINE
  7. FINASTERIDE. [Concomitant]
     Active Substance: FINASTERIDE
  8. BENAZEPRIL [Concomitant]
     Active Substance: BENAZEPRIL\BENAZEPRIL HYDROCHLORIDE
  9. HYDROCHLOROTHIAZIDE. [Concomitant]
     Active Substance: HYDROCHLOROTHIAZIDE
  10. ASPIRIN. [Concomitant]
     Active Substance: ASPIRIN

REACTIONS (1)
  - Rash [Not Recovered/Not Resolved]

NARRATIVE: CASE EVENT DATE: 20141022
